FAERS Safety Report 26157168 (Version 4)
Quarter: 2025Q4

REPORT INFORMATION
  Report Type: Spontaneous
  Country: JP (occurrence: JP)
  Receive Date: 20251215
  Receipt Date: 20251226
  Transmission Date: 20260117
  Serious: Yes (Death, Other)
  Sender: ALEXION PHARMACEUTICALS
  Company Number: JP-AstraZeneca-CH-01013119A

PATIENT
  Age: 77 Year
  Sex: Female
  Weight: 40.8 kg

DRUGS (1)
  1. TAGRISSO [Suspect]
     Active Substance: OSIMERTINIB
     Indication: Non-small cell lung cancer
     Dosage: 80 MILLIGRAM, QD
     Route: 061
     Dates: start: 20250930, end: 20251113

REACTIONS (2)
  - Interstitial lung disease [Fatal]
  - Radiation pneumonitis [Fatal]

NARRATIVE: CASE EVENT DATE: 20251103
